FAERS Safety Report 5108164-1 (Version None)
Quarter: 2006Q3

REPORT INFORMATION
  Report Type: 
  Country: None (occurrence: None)
  Receive Date: 20060919
  Receipt Date: 20060315
  Transmission Date: 20061208
  Serious: Yes (Life-Threatening, Hospitalization, Disabling)
  Sender: FDA-Public Use
  Company Number: JP-ROCHE-440679

PATIENT
  Age: 65 Year
  Sex: Male

DRUGS (10)
  1. PANALDINE [Suspect]
     Indication: THROMBOSIS PROPHYLAXIS
     Route: 048
     Dates: start: 20060130, end: 20060227
  2. ASPIRIN [Suspect]
     Indication: ACUTE MYOCARDIAL INFARCTION
     Route: 048
     Dates: start: 20060129, end: 20060227
  3. DORNER [Suspect]
     Indication: ARTERIOSCLEROSIS OBLITERANS
     Route: 048
     Dates: start: 20060220, end: 20060227
  4. VASOLAN [Suspect]
     Indication: ACUTE MYOCARDIAL INFARCTION
     Route: 048
     Dates: start: 20060209, end: 20060227
  5. IMIDAPRIL HCL [Suspect]
     Indication: HYPERTENSION
     Route: 048
     Dates: start: 20060221, end: 20060227
  6. TAKEPRON [Suspect]
     Indication: GASTRIC ULCER
     Route: 048
     Dates: start: 20060220, end: 20060227
  7. WARFARIN SODIUM [Suspect]
     Indication: ACUTE MYOCARDIAL INFARCTION
     Route: 048
     Dates: start: 20060220, end: 20060227
  8. CEFZON [Suspect]
     Indication: INFLAMMATION
     Route: 048
     Dates: start: 20060225, end: 20060227
  9. HEPARIN [Concomitant]
     Dates: start: 20060206
  10. KATECHOLAMINE [Concomitant]
     Dates: start: 20060127

REACTIONS (7)
  - ARTERIOSCLEROSIS OBLITERANS [None]
  - GANGRENE [None]
  - HYPERTENSION [None]
  - SEPSIS [None]
  - STEVENS-JOHNSON SYNDROME [None]
  - TOXIC EPIDERMAL NECROLYSIS [None]
  - URINARY TRACT INFECTION [None]
